FAERS Safety Report 7563085-X (Version None)
Quarter: 2011Q2

REPORT INFORMATION
  Report Type: 
  Country: None (occurrence: None)
  Receive Date: 20110622
  Receipt Date: 20110613
  Transmission Date: 20111010
  Serious: Yes (Other)
  Sender: FDA-Public Use
  Company Number: US-AMGEN-USASP2011013708

PATIENT
  Age: 86 Year
  Sex: Female

DRUGS (2)
  1. ENBREL [Suspect]
  2. ENBREL [Suspect]
     Indication: RHEUMATOID ARTHRITIS
     Dosage: 25 MG, 2 TIMES/WK
     Dates: start: 19981101

REACTIONS (14)
  - PAIN IN EXTREMITY [None]
  - ARTHRALGIA [None]
  - PAIN OF SKIN [None]
  - ERYTHEMA [None]
  - BLISTER [None]
  - PAIN [None]
  - CHILLS [None]
  - PRURITUS [None]
  - RHEUMATOID ARTHRITIS [None]
  - BONE PAIN [None]
  - ANXIETY [None]
  - SUICIDAL IDEATION [None]
  - BURNING SENSATION [None]
  - FACIAL PAIN [None]
